FAERS Safety Report 24995398 (Version 1)
Quarter: 2025Q1

REPORT INFORMATION
  Report Type: Spontaneous
  Country: US (occurrence: RU)
  Receive Date: 20250221
  Receipt Date: 20250221
  Transmission Date: 20250409
  Serious: Yes (Other)
  Sender: ANI
  Company Number: US-ANIPHARMA-2025-RU-000005

PATIENT
  Age: 58 Year
  Sex: Female

DRUGS (3)
  1. ARIMIDEX [Suspect]
     Active Substance: ANASTROZOLE
     Indication: Product used for unknown indication
  2. FASLODEX [Suspect]
     Active Substance: FULVESTRANT
  3. DEVICE [Suspect]
     Active Substance: DEVICE

REACTIONS (4)
  - Metastasis [Unknown]
  - Pain [Unknown]
  - Condition aggravated [Unknown]
  - Asthenia [Unknown]
